FAERS Safety Report 16942579 (Version 4)
Quarter: 2019Q4

REPORT INFORMATION
  Report Type: Report from Study
  Country: US (occurrence: US)
  Receive Date: 20191021
  Receipt Date: 20191231
  Transmission Date: 20200122
  Serious: Yes (Hospitalization)
  Sender: FDA-Public Use
  Company Number: US-CELGENEUS-USA-20191005948

PATIENT
  Age: 74 Year
  Sex: Female
  Weight: 73.6 kg

DRUGS (6)
  1. ENTINOSTAT [Suspect]
     Active Substance: ENTINOSTAT
     Dosage: 8 MILLIGRAM
     Route: 048
     Dates: start: 20191211
  2. AZACITIDINE. [Suspect]
     Active Substance: AZACITIDINE
     Indication: ACUTE MYELOID LEUKAEMIA
     Dosage: 50 MILLIGRAM/SQ. METER
     Route: 041
     Dates: start: 20190917, end: 20190926
  3. ENTINOSTAT [Suspect]
     Active Substance: ENTINOSTAT
     Dosage: 8 MILLIGRAM
     Route: 048
     Dates: start: 20191003
  4. AZACITIDINE. [Suspect]
     Active Substance: AZACITIDINE
     Dosage: 50 MILLIGRAM/SQ. METER
     Route: 041
     Dates: end: 20191204
  5. AZACITIDINE. [Suspect]
     Active Substance: AZACITIDINE
     Dosage: 50 MILLIGRAM/SQ. METER
     Route: 041
     Dates: start: 20191025
  6. ENTINOSTAT [Suspect]
     Active Substance: ENTINOSTAT
     Indication: ACUTE MYELOID LEUKAEMIA
     Dosage: 8 MILLIGRAM
     Route: 048
     Dates: start: 20190926

REACTIONS (2)
  - Skin infection [Recovered/Resolved]
  - Soft tissue infection [Not Recovered/Not Resolved]

NARRATIVE: CASE EVENT DATE: 20191012
